FAERS Safety Report 6184875-4 (Version None)
Quarter: 2009Q2

REPORT INFORMATION
  Report Type: 
  Country: None (occurrence: None)
  Receive Date: 20090508
  Receipt Date: 20090506
  Transmission Date: 20091009
  Serious: Yes (Hospitalization, Other)
  Sender: FDA-Public Use
  Company Number: US-MERCK-0905USA00694

PATIENT
  Age: 36 Year
  Sex: Female

DRUGS (18)
  1. CANCIDAS [Suspect]
     Indication: ANTIFUNGAL TREATMENT
     Route: 042
     Dates: start: 20090503, end: 20090503
  2. CANCIDAS [Suspect]
     Route: 042
     Dates: start: 20090504
  3. COMBIVENT [Concomitant]
     Route: 065
  4. SOLU-MEDROL [Concomitant]
     Route: 065
  5. ALBUMIN HUMAN [Concomitant]
     Route: 065
  6. LORAZEPAM [Concomitant]
     Route: 065
  7. NEXIUM [Concomitant]
     Route: 065
  8. INSULIN [Concomitant]
     Route: 065
  9. NYSTATIN [Concomitant]
     Route: 065
  10. ONDANSETRON [Concomitant]
     Route: 065
  11. SEROQUEL [Concomitant]
     Route: 065
  12. TACROLIMUS [Concomitant]
     Route: 065
  13. GANCICLOVIR [Concomitant]
     Route: 065
  14. LEPIRUDIN [Concomitant]
     Route: 065
  15. DAPTOMYCIN [Concomitant]
     Route: 042
  16. FENTANYL [Concomitant]
     Route: 065
  17. ZOSYN [Concomitant]
     Route: 065
  18. LEVOPHED [Concomitant]
     Route: 065

REACTIONS (2)
  - LIVER FUNCTION TEST ABNORMAL [None]
  - LOCALISED INTRAABDOMINAL FLUID COLLECTION [None]
